FAERS Safety Report 11024105 (Version 2)
Quarter: 2015Q2

REPORT INFORMATION
  Report Type: Report from Study
  Country: US (occurrence: US)
  Receive Date: 20150413
  Receipt Date: 20150527
  Transmission Date: 20150821
  Serious: Yes (Hospitalization)
  Sender: FDA-Public Use
  Company Number: PHEH2015US002788

PATIENT
  Age: 44 Year
  Sex: Female
  Weight: 131.52 kg

DRUGS (1)
  1. GILENYA [Suspect]
     Active Substance: FINGOLIMOD HYDROCHLORIDE
     Indication: MULTIPLE SCLEROSIS
     Dosage: 0.5 MG, QD
     Route: 048
     Dates: start: 20150112

REACTIONS (7)
  - Headache [Recovering/Resolving]
  - Dizziness [Recovering/Resolving]
  - Encephalopathy [Recovering/Resolving]
  - Vision blurred [Recovering/Resolving]
  - Vitreous floaters [Recovering/Resolving]
  - Photophobia [Recovering/Resolving]
  - Dysgeusia [Unknown]

NARRATIVE: CASE EVENT DATE: 20150316
